FAERS Safety Report 24540757 (Version 1)
Quarter: 2024Q4

REPORT INFORMATION
  Report Type: Spontaneous
  Country: US (occurrence: US)
  Receive Date: 20241023
  Receipt Date: 20241023
  Transmission Date: 20250115
  Serious: No
  Sender: INSUD PHARMA
  Company Number: US-INSUD PHARMA-2410US07871

PATIENT

DRUGS (3)
  1. TESTOSTERONE [Suspect]
     Active Substance: TESTOSTERONE
     Indication: Androgen deficiency
     Dosage: ONE PUMP PER SHOULDER AFTER 3 PM
     Route: 061
     Dates: start: 2024
  2. TESTOSTERONE [Suspect]
     Active Substance: TESTOSTERONE
     Dosage: ONE PUMP PER SHOULDER PER DAY IN THE MORNING
     Route: 061
     Dates: start: 20241010
  3. TESTOSTERONE [Suspect]
     Active Substance: TESTOSTERONE
     Dosage: ONE PUMP PER SHOULDER PER DAY AT BEDTIME
     Route: 061
     Dates: start: 2024

REACTIONS (3)
  - Blood testosterone increased [Unknown]
  - Insomnia [Recovered/Resolved]
  - Wrong technique in product usage process [Unknown]

NARRATIVE: CASE EVENT DATE: 20240101
